FAERS Safety Report 5846522-8 (Version None)
Quarter: 2008Q3

REPORT INFORMATION
  Report Type: 
  Country: None (occurrence: None)
  Receive Date: 20080815
  Receipt Date: 20080808
  Transmission Date: 20090109
  Serious: Yes (Hospitalization)
  Sender: FDA-Public Use
  Company Number: JP-ABBOTT-08P-087-0469507-00

PATIENT
  Age: 22 Year
  Sex: Male
  Weight: 73.7 kg

DRUGS (5)
  1. CLARITHROMYCIN [Suspect]
     Indication: PNEUMONIA
     Route: 048
     Dates: start: 20080226, end: 20080303
  2. CLARITHROMYCIN [Suspect]
     Indication: PYREXIA
     Route: 048
     Dates: start: 20080311, end: 20080313
  3. PIPERACILLIN SODIUM [Suspect]
     Indication: PNEUMONIA
     Dosage: ROUTE: DIV
     Dates: start: 20080226, end: 20080229
  4. PIPERACILLIN SODIUM [Suspect]
     Indication: PYREXIA
     Dosage: ROUTE: DIV
     Dates: start: 20080311, end: 20080313
  5. SULPERAZON [Suspect]
     Indication: BILIARY TRACT INFECTION
     Dosage: ROUTE: DIV
     Dates: start: 20080313, end: 20080314

REACTIONS (5)
  - BILIARY TRACT INFECTION [None]
  - HEPATIC ENCEPHALOPATHY [None]
  - HEPATIC ENZYME INCREASED [None]
  - HEPATITIS FULMINANT [None]
  - NAUSEA [None]
